FAERS Safety Report 10499029 (Version 1)
Quarter: 2014Q4

REPORT INFORMATION
  Report Type: Spontaneous
  Country: US (occurrence: US)
  Receive Date: 20141006
  Receipt Date: 20141006
  Transmission Date: 20150528
  Serious: Yes (Hospitalization)
  Sender: FDA-Public Use
  Company Number: US-ABBVIE-14P-163-1291841-00

PATIENT
  Age: 14 Year
  Sex: Female

DRUGS (3)
  1. OXYCODONE HYDROCHLORIDE. [Suspect]
     Active Substance: OXYCODONE HYDROCHLORIDE
     Indication: PRODUCT USED FOR UNKNOWN INDICATION
     Route: 048
  2. CLONIDINE. [Suspect]
     Active Substance: CLONIDINE
     Indication: SLEEP DISORDER
     Dosage: AT BEDTIME FREQUENCY UNKNOWN
  3. VALPROIC ACID. [Suspect]
     Active Substance: VALPROIC ACID
     Indication: AKATHISIA
     Route: 065

REACTIONS (24)
  - Toxicity to various agents [Unknown]
  - Mental status changes [Recovered/Resolved]
  - Pulse absent [Recovered/Resolved]
  - Apnoea [Recovered/Resolved]
  - Cognitive disorder [Unknown]
  - Dyskinesia [Unknown]
  - Sleep disorder [Unknown]
  - Central nervous system lesion [Recovered/Resolved]
  - Akathisia [Unknown]
  - Off label use [Unknown]
  - Aspartate aminotransferase increased [Recovered/Resolved]
  - Unresponsive to stimuli [Recovered/Resolved]
  - Blood pH decreased [Recovered/Resolved]
  - Blood creatinine increased [Recovered/Resolved]
  - Alanine aminotransferase increased [Recovered/Resolved]
  - Mood swings [Unknown]
  - Depressed level of consciousness [Unknown]
  - Romberg test positive [Unknown]
  - Abasia [Unknown]
  - Ballismus [Unknown]
  - Pupillary light reflex tests abnormal [Recovered/Resolved]
  - Blood lactic acid increased [Recovered/Resolved]
  - Blood creatine phosphokinase increased [Recovered/Resolved]
  - Toxic encephalopathy [Recovered/Resolved]
